FAERS Safety Report 8568943-5 (Version None)
Quarter: 2012Q3

REPORT INFORMATION
  Report Type: 
  Country: None (occurrence: None)
  Receive Date: 20120803
  Receipt Date: 20120209
  Transmission Date: 20120928
  Serious: No
  Sender: FDA-Public Use
  Company Number: US-ABBOTT-12P-163-0903012-00

PATIENT
  Sex: Female
  Weight: 53.572 kg

DRUGS (5)
  1. NIASPAN [Suspect]
     Indication: LOW DENSITY LIPOPROTEIN INCREASED
     Dosage: AFTER EVENING MEAL
     Route: 048
     Dates: start: 20120125
  2. CHILDRENS GUMMIE MULTIVITAMINS [Concomitant]
     Indication: PRODUCT USED FOR UNKNOWN INDICATION
     Dosage: TWO
     Route: 048
  3. NIASPAN [Suspect]
     Indication: BLOOD CHOLESTEROL INCREASED
  4. ASPIRIN [Concomitant]
     Indication: PRODUCT USED FOR UNKNOWN INDICATION
     Dosage: 30 MINUTES PRIOR TO NIASPAN COATED DOSE
     Route: 048
  5. NIASPAN [Suspect]
     Indication: FAMILIAL RISK FACTOR

REACTIONS (2)
  - NAUSEA [None]
  - VOMITING [None]
